FAERS Safety Report 9161062 (Version 3)
Quarter: 2013Q2

REPORT INFORMATION
  Report Type: Spontaneous
  Country: DE (occurrence: DE)
  Receive Date: 20130313
  Receipt Date: 20130429
  Transmission Date: 20140414
  Serious: Yes (Death, Other)
  Sender: FDA-Public Use
  Company Number: DE-CUBIST PHARMACEUTICAL, INC.-2013CBST000183

PATIENT
  Sex: 0

DRUGS (2)
  1. CUBICIN [Suspect]
     Indication: STAPHYLOCOCCAL INFECTION
     Route: 042
  2. CEFTAROLINE FOSAMIL [Suspect]
     Indication: INTERVERTEBRAL DISCITIS
     Dosage: 300 MG, BID
     Route: 042
     Dates: start: 20130130, end: 20130225

REACTIONS (2)
  - Death [Fatal]
  - General physical health deterioration [Unknown]
